FAERS Safety Report 24422902 (Version 1)
Quarter: 2024Q4

REPORT INFORMATION
  Report Type: Spontaneous
  Country: US (occurrence: US)
  Receive Date: 20241010
  Receipt Date: 20241010
  Transmission Date: 20250115
  Serious: Yes (Other)
  Sender: GLENMARK
  Company Number: US-MLMSERVICE-20240923-PI204535-00306-1

PATIENT

DRUGS (8)
  1. TACROLIMUS [Suspect]
     Active Substance: TACROLIMUS
     Indication: Immunosuppressant drug therapy
     Dosage: UNK (INITIATED AND FEW MONTHS AFTER TRANSPLANTATION WARRANTING AUGMENTED IMMUNOSUPPRESSION)
     Route: 065
  2. TACROLIMUS [Suspect]
     Active Substance: TACROLIMUS
     Indication: Transplant rejection
  3. MYCOPHENOLATE MOFETIL [Suspect]
     Active Substance: MYCOPHENOLATE MOFETIL
     Indication: Transplant rejection
     Dosage: UNK (INITIATED AND FEW MONTHS AFTER TRANSPLANTATION WARRANTING AUGMENTED IMMUNOSUPPRESSION)
     Route: 065
  4. MYCOPHENOLATE MOFETIL [Suspect]
     Active Substance: MYCOPHENOLATE MOFETIL
     Indication: Immunosuppressant drug therapy
  5. PREDNISONE [Suspect]
     Active Substance: PREDNISONE
     Indication: Immunosuppressant drug therapy
     Dosage: UNK (INITIATED AND FEW MONTHS AFTER TRANSPLANTATION WARRANTING AUGMENTED IMMUNOSUPPRESSION)
     Route: 065
  6. PREDNISONE [Suspect]
     Active Substance: PREDNISONE
     Indication: Transplant rejection
  7. ASPIRIN [Concomitant]
     Active Substance: ASPIRIN
     Indication: Product used for unknown indication
     Dosage: UNK
     Route: 065
  8. APIXABAN [Concomitant]
     Active Substance: APIXABAN
     Indication: Anticoagulant therapy
     Dosage: UNK
     Route: 065

REACTIONS (7)
  - Arteriosclerosis coronary artery [Unknown]
  - Coronary artery occlusion [Unknown]
  - Arteriosclerosis [Unknown]
  - Coronary artery stenosis [Unknown]
  - Condition aggravated [Unknown]
  - Arteriosclerosis coronary artery [Unknown]
  - Acute myocardial infarction [Unknown]
